FAERS Safety Report 5832714-0 (Version None)
Quarter: 2008Q3

REPORT INFORMATION
  Report Type: 
  Country: None (occurrence: None)
  Receive Date: 20080804
  Receipt Date: 20080721
  Transmission Date: 20090109
  Serious: Yes (Death, Hospitalization)
  Sender: FDA-Public Use
  Company Number: PHHO2001AT05079

PATIENT
  Sex: Female
  Weight: 57 kg

DRUGS (4)
  1. RAD 666 RAD+ [Suspect]
     Indication: RENAL TRANSPLANT
     Dosage: 1.5 MG, BID
     Route: 048
     Dates: start: 19990410, end: 20001129
  2. RAD 666 / RAD 001A [Suspect]
     Indication: RENAL TRANSPLANT
     Dosage: 3 MG, DAILY
     Route: 048
     Dates: start: 20001130, end: 20010608
  3. NEORAL [Suspect]
     Indication: RENAL TRANSPLANT
     Dosage: NOT REPORTED
     Route: 048
  4. PREDNISOLON [Suspect]
     Indication: RENAL TRANSPLANT

REACTIONS (3)
  - DYSPHAGIA [None]
  - GASTRIC CANCER STAGE IV [None]
  - NEOPLASM [None]
